FAERS Safety Report 4350451-9 (Version None)
Quarter: 2004Q2

REPORT INFORMATION
  Report Type: 
  Country: None (occurrence: None)
  Receive Date: 20040427
  Receipt Date: 20040414
  Transmission Date: 20050107
  Serious: Yes (Other)
  Sender: FDA-Public Use
  Company Number: 2004026086

PATIENT
  Age: 73 Year
  Sex: Male
  Weight: 78.4723 kg

DRUGS (16)
  1. TIKOSYN [Suspect]
     Indication: ARRHYTHMIA
     Dosage: 250 MCG (BID), ORAL
     Route: 048
  2. PAROXETINE HCL [Suspect]
     Indication: DEPRESSION
  3. ASPIRIN [Concomitant]
  4. POTASSIUM [Concomitant]
  5. PANTOPRAZOLE [Concomitant]
  6. CAPTOPRIL [Concomitant]
  7. ATORVASTATIN [Concomitant]
  8. GLYBURIDE [Concomitant]
  9. PREDNISONE [Concomitant]
  10. FUROSEMIDE [Concomitant]
  11. SALMETEROL XINAFOATE [Concomitant]
  12. BUDESONIDE [Concomitant]
  13. ALBUTEROL SULFATE [Concomitant]
  14. IPRATROPIUM BROMIDE [Concomitant]
  15. ZOLPIDEM TARTRATE [Concomitant]
  16. CEPHALEXIN MONOHYDRATE [Concomitant]

REACTIONS (6)
  - ANHIDROSIS [None]
  - CHRONIC OBSTRUCTIVE AIRWAYS DISEASE EXACERBATED [None]
  - CONDITION AGGRAVATED [None]
  - DEPRESSION [None]
  - DRY SKIN [None]
  - TREMOR [None]
